FAERS Safety Report 6251781-6 (Version None)
Quarter: 2009Q2

REPORT INFORMATION
  Report Type: 
  Country: None (occurrence: None)
  Receive Date: 20090630
  Receipt Date: 20090622
  Transmission Date: 20091009
  Serious: Yes (Other)
  Sender: FDA-Public Use
  Company Number: US-AMGEN-QUU352683

PATIENT
  Sex: Female

DRUGS (2)
  1. ENBREL [Suspect]
     Indication: RHEUMATOID ARTHRITIS
     Route: 058
     Dates: start: 20040301
  2. METHOTREXATE [Concomitant]
     Route: 048

REACTIONS (4)
  - BREAST CANCER [None]
  - EYE INFLAMMATION [None]
  - INFLUENZA LIKE ILLNESS [None]
  - LUNG NEOPLASM [None]
